FAERS Safety Report 5154030-5 (Version None)
Quarter: 2006Q4

REPORT INFORMATION
  Report Type: 
  Country: None (occurrence: None)
  Receive Date: 20061120
  Receipt Date: 20061114
  Transmission Date: 20070319
  Serious: Yes (Hospitalization)
  Sender: FDA-Public Use
  Company Number: SE-GLAXOSMITHKLINE-B0447092A

PATIENT
  Sex: Male

DRUGS (1)
  1. LEUKERAN [Suspect]
     Indication: CHRONIC LYMPHOCYTIC LEUKAEMIA
     Dates: end: 20061016

REACTIONS (3)
  - BONE MARROW FAILURE [None]
  - PYREXIA [None]
  - WHITE BLOOD CELL COUNT INCREASED [None]
